FAERS Safety Report 9899890 (Version 5)
Quarter: 2014Q3

REPORT INFORMATION
  Report Type: Report from Study
  Country: CA (occurrence: CA)
  Receive Date: 20140214
  Receipt Date: 20140710
  Transmission Date: 20150326
  Serious: Yes (Hospitalization)
  Sender: FDA-Public Use
  Company Number: CA-BRISTOL-MYERS SQUIBB COMPANY-19659556

PATIENT
  Age: 71 Year
  Sex: Female

DRUGS (15)
  1. VITAMIN D [Concomitant]
     Active Substance: CHOLECALCIFEROL
  2. METOPROLOL [Concomitant]
     Active Substance: METOPROLOL
  3. HYDROMORPHONE [Concomitant]
     Active Substance: HYDROMORPHONE
  4. DENOSUMAB [Concomitant]
     Active Substance: DENOSUMAB
  5. RABEPRAZOLE [Concomitant]
     Active Substance: RABEPRAZOLE
  6. METFORMIN [Concomitant]
     Active Substance: METFORMIN HYDROCHLORIDE
  7. AMITRIPTYLINE [Concomitant]
     Active Substance: AMITRIPTYLINE
  8. CYMBALTA [Concomitant]
     Active Substance: DULOXETINE HYDROCHLORIDE
  9. PREDNISONE. [Concomitant]
     Active Substance: PREDNISONE
  10. FOLIC ACID. [Concomitant]
     Active Substance: FOLIC ACID
  11. CALTRATE [Concomitant]
     Active Substance: CALCIUM CARBONATE
  12. MULTIVITAMIN [Concomitant]
     Active Substance: VITAMINS
  13. ORENCIA [Suspect]
     Active Substance: ABATACEPT
     Indication: RHEUMATOID ARTHRITIS
     Dosage: RECENT DOSE:25-SEP-2013
     Route: 042
     Dates: start: 20080626
  14. ATIVAN [Concomitant]
     Active Substance: LORAZEPAM
  15. DENOSUMAB [Concomitant]
     Active Substance: DENOSUMAB

REACTIONS (3)
  - Cardiac ventricular disorder [Unknown]
  - Pneumonia [Not Recovered/Not Resolved]
  - Cardiac failure congestive [Recovered/Resolved]

NARRATIVE: CASE EVENT DATE: 20131016
